FAERS Safety Report 9850374 (Version 1)
Quarter: 2014Q1

REPORT INFORMATION
  Report Type: Report from Study
  Country: GB (occurrence: GB)
  Receive Date: 20140128
  Receipt Date: 20140128
  Transmission Date: 20141002
  Serious: Yes (Other)
  Sender: FDA-Public Use
  Company Number: GB-B.I. PHARMACEUTICALS,INC./RIDGEFIELD-2014-BI-03096GD

PATIENT
  Sex: 0

DRUGS (2)
  1. ATROVENT [Suspect]
     Indication: ASTHMA
     Dosage: 0.75 MG
     Route: 055
  2. SALBUTAMOL [Suspect]
     Indication: ASTHMA
     Dosage: 2.5 MG (FOR THOSE AGED 2-5 YEARS) OR 5 MG (FOR THOSE AGED 6 YEARS OR OLDER)
     Route: 055

REACTIONS (1)
  - Altered state of consciousness [Unknown]
